FAERS Safety Report 13677872 (Version 2)
Quarter: 2017Q2

REPORT INFORMATION
  Report Type: Spontaneous
  Country: US (occurrence: US)
  Receive Date: 20170622
  Receipt Date: 20170629
  Transmission Date: 20170830
  Serious: Yes (Death, Other)
  Sender: FDA-Public Use
  Company Number: US-CELGENEUS-USA-20170606751

PATIENT
  Sex: Female

DRUGS (1)
  1. REVLIMID [Suspect]
     Active Substance: LENALIDOMIDE
     Indication: PLASMA CELL MYELOMA
     Dosage: 5 MILLIGRAM
     Route: 048
     Dates: start: 201603

REACTIONS (5)
  - Cardiac arrest [Unknown]
  - Unevaluable event [Fatal]
  - Cardiac disorder [Fatal]
  - Multiple organ dysfunction syndrome [Unknown]
  - End stage renal disease [Fatal]
